FAERS Safety Report 7812679-2 (Version None)
Quarter: 2011Q4

REPORT INFORMATION
  Report Type: 
  Country: None (occurrence: None)
  Receive Date: 20111013
  Receipt Date: 20110929
  Transmission Date: 20120403
  Serious: Yes (Other)
  Sender: FDA-Public Use
  Company Number: DE-ELI_LILLY_AND_COMPANY-DE201109008554

PATIENT
  Age: 66 Year
  Sex: Female

DRUGS (3)
  1. ZYPREXA [Suspect]
     Dosage: 10 MG, UNK
  2. VENLAFAXINE [Concomitant]
  3. MIRTAZAPINE [Concomitant]

REACTIONS (1)
  - AGRANULOCYTOSIS [None]
